FAERS Safety Report 13036849 (Version 1)
Quarter: 2016Q4

REPORT INFORMATION
  Report Type: Spontaneous
  Country: GB (occurrence: GB)
  Receive Date: 20161216
  Receipt Date: 20161216
  Transmission Date: 20170207
  Serious: Yes (Hospitalization, Disabling, Other)
  Sender: FDA-Public Use
  Company Number: GB-MYLANLABS-2016M1055025

PATIENT

DRUGS (9)
  1. FERROUS SULFATE. [Concomitant]
     Active Substance: FERROUS SULFATE
     Indication: PRODUCT USED FOR UNKNOWN INDICATION
     Dosage: 200 MG, TID
     Dates: start: 20161027
  2. FULTIUM D3 [Concomitant]
     Indication: PRODUCT USED FOR UNKNOWN INDICATION
     Dosage: 800 IU, QD
     Dates: start: 20161027
  3. TIOTROPIUM BROMIDE [Concomitant]
     Active Substance: TIOTROPIUM BROMIDE
     Indication: PRODUCT USED FOR UNKNOWN INDICATION
     Dosage: 18 ?G, QD
     Route: 055
     Dates: start: 20160902, end: 20161101
  4. MIRTAZAPINE. [Suspect]
     Active Substance: MIRTAZAPINE
     Indication: CHRONIC DISEASE
     Dosage: AT NIGHT.
     Route: 048
  5. VENTOLIN [Concomitant]
     Active Substance: ALBUTEROL SULFATE
     Indication: PRODUCT USED FOR UNKNOWN INDICATION
     Dosage: 1 TO 2 PUFFS UP TO FOUR TIMES DAILY AS REQUIRED.
     Route: 055
     Dates: start: 20160902
  6. RISPERIDONE. [Concomitant]
     Active Substance: RISPERIDONE
     Dosage: 4 MG, QD
     Dates: start: 20160930
  7. PARACETAMOL [Concomitant]
     Active Substance: ACETAMINOPHEN
     Indication: PRODUCT USED FOR UNKNOWN INDICATION
     Dosage: THREE TIMES A DAY
     Dates: start: 20161027
  8. RISPERIDONE. [Concomitant]
     Active Substance: RISPERIDONE
     Indication: PRODUCT USED FOR UNKNOWN INDICATION
     Dosage: AT NIGHT.
     Dates: start: 20160902, end: 20160930
  9. RANITIDINE. [Concomitant]
     Active Substance: RANITIDINE
     Indication: PRODUCT USED FOR UNKNOWN INDICATION
     Dosage: EVERY MORNING.
     Dates: start: 20161027

REACTIONS (3)
  - Hyponatraemia [Recovering/Resolving]
  - Lethargy [Recovering/Resolving]
  - Confusional state [Recovering/Resolving]

NARRATIVE: CASE EVENT DATE: 20160925
